FAERS Safety Report 7806244-0 (Version None)
Quarter: 2011Q4

REPORT INFORMATION
  Report Type: 
  Country: None (occurrence: None)
  Receive Date: 20111011
  Receipt Date: 20110930
  Transmission Date: 20120403
  Serious: Yes (Hospitalization)
  Sender: FDA-Public Use
  Company Number: US-JNJFOC-20110804680

PATIENT
  Sex: Male
  Weight: 80.74 kg

DRUGS (4)
  1. STELARA [Suspect]
     Indication: AUTOIMMUNE DISORDER
     Route: 058
  2. DILAUDID [Concomitant]
     Indication: PAIN
  3. PLAVIX [Concomitant]
     Indication: THROMBOSIS PROPHYLAXIS
  4. GLIPIZIDE [Concomitant]
     Indication: DIABETES MELLITUS

REACTIONS (4)
  - OEDEMA PERIPHERAL [None]
  - ABASIA [None]
  - DYSPNOEA [None]
  - SKIN DISCOLOURATION [None]
